FAERS Safety Report 9780646 (Version 4)
Quarter: 2014Q2

REPORT INFORMATION
  Report Type: Spontaneous
  Country: JP (occurrence: JP)
  Receive Date: 20131224
  Receipt Date: 20140623
  Transmission Date: 20141212
  Serious: Yes (Hospitalization, Other)
  Sender: FDA-Public Use
  Company Number: JP-ROCHE-1325050

PATIENT
  Age: 60 Year
  Sex: Female
  Weight: 56 kg

DRUGS (7)
  1. LUCENTIS [Suspect]
     Indication: RETINAL VEIN OCCLUSION
     Route: 050
     Dates: start: 20130910, end: 20130910
  2. LASIX [Concomitant]
  3. CALTAN [Concomitant]
  4. PHOSBLOCK [Concomitant]
  5. CALBLOCK [Concomitant]
  6. ROCALTROL [Concomitant]
  7. MARZULENE-S [Concomitant]

REACTIONS (3)
  - Cerebral infarction [Recovered/Resolved]
  - General physical health deterioration [Recovering/Resolving]
  - Malaise [Recovering/Resolving]
